FAERS Safety Report 18266361 (Version 1)
Quarter: 2020Q3

REPORT INFORMATION
  Report Type: Spontaneous
  Country: US (occurrence: US)
  Receive Date: 20200915
  Receipt Date: 20200915
  Transmission Date: 20201103
  Serious: Yes (Other)
  Sender: FDA-Public Use
  Company Number: US-SUN PHARMACEUTICAL INDUSTRIES LTD-2019R1-221286

PATIENT
  Age: 17 Year
  Sex: Male

DRUGS (1)
  1. MINOCYCLINE [Suspect]
     Active Substance: MINOCYCLINE HYDROCHLORIDE
     Indication: ACNE
     Dosage: 100 MILLIGRAM, BID
     Route: 065

REACTIONS (4)
  - Ischaemia [Unknown]
  - Antineutrophil cytoplasmic antibody positive [Unknown]
  - IIIrd nerve paralysis [Unknown]
  - Vasculitis [Unknown]
